FAERS Safety Report 6328789-5 (Version None)
Quarter: 2009Q3

REPORT INFORMATION
  Report Type: 
  Country: None (occurrence: None)
  Receive Date: 20090826
  Receipt Date: 20090819
  Transmission Date: 20100115
  Serious: Yes (Hospitalization)
  Sender: FDA-Public Use
  Company Number: US-BRISTOL-MYERS SQUIBB COMPANY-14738660

PATIENT
  Age: 45 Year
  Sex: Female
  Weight: 70 kg

DRUGS (8)
  1. IXABEPILONE [Suspect]
     Indication: BREAST CANCER
     Dosage: 40MG/M2=73MG;RECENTDOSE:09AUG09.
     Route: 042
     Dates: start: 20090601, end: 20090731
  2. CYCLOPHOSPHAMIDE [Suspect]
     Indication: BREAST CANCER
     Dosage: 600MG/M2=1098MG;RECENT DOSE 09AUG09.
     Route: 042
     Dates: start: 20090601, end: 20090731
  3. ZOFRAN [Concomitant]
     Dates: start: 20090508
  4. COMPAZINE [Concomitant]
     Dates: start: 20090508
  5. PHENERGAN [Concomitant]
     Dates: start: 20090731
  6. LOMOTIL [Concomitant]
     Dosage: Q2H
     Dates: start: 20090807
  7. LORTAB [Concomitant]
  8. IMODIUM [Concomitant]

REACTIONS (2)
  - FEBRILE NEUTROPENIA [None]
  - GASTROENTERITIS [None]
